FAERS Safety Report 5781631-3 (Version None)
Quarter: 2008Q2

REPORT INFORMATION
  Report Type: 
  Country: None (occurrence: None)
  Receive Date: 20080623
  Receipt Date: 20080612
  Transmission Date: 20081010
  Serious: Yes (Hospitalization)
  Sender: FDA-Public Use
  Company Number: GB-AMGEN-UK286834

PATIENT
  Sex: Male

DRUGS (4)
  1. PANITUMUMAB [Suspect]
     Indication: SQUAMOUS CELL CARCINOMA
     Route: 041
     Dates: start: 20080604
  2. FLUOROURACIL [Suspect]
     Route: 041
     Dates: start: 20080604
  3. CISPLATIN [Suspect]
     Route: 041
     Dates: start: 20080604
  4. UNSPECIFIED ANTIHYPERTENSIVE AGENT [Concomitant]

REACTIONS (5)
  - DEHYDRATION [None]
  - HYPOTENSION [None]
  - PULMONARY OEDEMA [None]
  - RASH [None]
  - SINUS ARRHYTHMIA [None]
